FAERS Safety Report 11631280 (Version 1)
Quarter: 2015Q4

REPORT INFORMATION
  Report Type: Report from Study
  Country: US (occurrence: US)
  Receive Date: 20151014
  Receipt Date: 20151014
  Transmission Date: 20160304
  Serious: No
  Sender: FDA-Public Use
  Company Number: US-AMGEN-USASL2015105134

PATIENT
  Age: 62 Year
  Sex: Male

DRUGS (1)
  1. ENBREL [Suspect]
     Active Substance: ETANERCEPT
     Indication: RHEUMATOID ARTHRITIS
     Dosage: UNK
     Route: 065
     Dates: start: 2013

REACTIONS (14)
  - Unevaluable event [Unknown]
  - Immune system disorder [Unknown]
  - Fatigue [Unknown]
  - Incorrect route of drug administration [Unknown]
  - Injection site discolouration [Unknown]
  - Drug dose omission [Unknown]
  - Peripheral swelling [Unknown]
  - Bone disorder [Unknown]
  - Wrong technique in product usage process [Unknown]
  - Chronic obstructive pulmonary disease [Unknown]
  - Musculoskeletal stiffness [Unknown]
  - Asthenia [Unknown]
  - Mobility decreased [Unknown]
  - Local swelling [Unknown]
